FAERS Safety Report 4487932-3 (Version None)
Quarter: 2004Q4

REPORT INFORMATION
  Report Type: 
  Country: None (occurrence: None)
  Receive Date: 20041026
  Receipt Date: 20041007
  Transmission Date: 20050328
  Serious: Yes (Other)
  Sender: FDA-Public Use
  Company Number: USA040157951

PATIENT
  Age: 69 Year
  Sex: Female
  Weight: 69 kg

DRUGS (3)
  1. EVISTA [Suspect]
     Indication: OSTEOARTHRITIS
     Route: 065
     Dates: start: 19980101, end: 20040401
  2. LESCOL [Concomitant]
  3. NEURONTIN (GABAPENTIN PFIZER) [Concomitant]

REACTIONS (8)
  - AMNESIA [None]
  - ASTHMA [None]
  - CAROTID ARTERY ATHEROMA [None]
  - DEMENTIA ALZHEIMER'S TYPE [None]
  - FATIGUE [None]
  - HYPOAESTHESIA [None]
  - MUSCLE CRAMP [None]
  - PARAESTHESIA [None]
